FAERS Safety Report 9630223 (Version 1)
Quarter: 2013Q4

REPORT INFORMATION
  Report Type: Spontaneous
  Country: US (occurrence: US)
  Receive Date: 20131017
  Receipt Date: 20131017
  Transmission Date: 20140711
  Serious: Yes (Hospitalization, Other)
  Sender: FDA-Public Use
  Company Number: US-SUCAMPO PHARMA AMERICAS, INC-SPI201300707

PATIENT
  Age: 57 Year
  Sex: Female
  Weight: 51.25 kg

DRUGS (6)
  1. AMITIZA [Suspect]
     Indication: CONSTIPATION
     Dosage: 24 MCG, BID
     Route: 048
     Dates: start: 2010
  2. ACTONEL [Concomitant]
     Indication: OSTEOPENIA
     Dosage: UNK
     Route: 048
  3. CALCIUM WITH VITAMIN D [Concomitant]
     Dosage: UNK
     Route: 048
  4. MULTIVITAMIN [Concomitant]
     Dosage: UNK
     Route: 048
  5. STOOL SOFTENER [Concomitant]
     Dosage: UNK
     Route: 048
  6. MIRALAX [Concomitant]
     Dosage: UNK
     Route: 048

REACTIONS (1)
  - Colon cancer [Recovering/Resolving]
